FAERS Safety Report 8914856 (Version 4)
Quarter: 2013Q1

REPORT INFORMATION
  Report Type: Report from Study
  Country: CA (occurrence: CA)
  Receive Date: 20121116
  Receipt Date: 20130110
  Transmission Date: 20140127
  Serious: Yes (Life-Threatening, Hospitalization)
  Sender: FDA-Public Use
  Company Number: CA-CELGENEUS-028-C5013-12112012

PATIENT
  Age: 76 Year
  Sex: Male
  Weight: 63 kg

DRUGS (53)
  1. CC-5013 [Suspect]
     Indication: PLASMA CELL MYELOMA
     Dosage: 10 MILLIGRAM
     Route: 048
     Dates: start: 20101019, end: 20120907
  2. DEXAMETHASONE [Suspect]
     Indication: PLASMA CELL MYELOMA
     Dosage: 40 MILLIGRAM
     Route: 065
     Dates: start: 20101019, end: 20120911
  3. MAGNESIUM SULFATE [Concomitant]
     Indication: TORSADE DE POINTES
     Dosage: 2 GRAM
     Route: 041
     Dates: start: 20121030, end: 20121030
  4. MAGNESIUM SULFATE [Concomitant]
     Dosage: 2 GRAM
     Route: 041
     Dates: start: 20121130
  5. POTASSIUM CHLORIDE [Concomitant]
     Indication: VENTRICULAR TACHYCARDIA
     Dosage: 20 MICROGRAM
     Route: 041
     Dates: start: 20120910, end: 20120910
  6. POTASSIUM CHLORIDE [Concomitant]
     Indication: HYPOKALAEMIA
     Dosage: 20 MILLIEQUIVALENTS
     Route: 041
     Dates: start: 20121030, end: 20121030
  7. POTASSIUM CHLORIDE [Concomitant]
     Dosage: 20 MILLIEQUIVALENTS
     Route: 041
     Dates: start: 20121130
  8. PANTOPRAZOLE [Concomitant]
     Indication: DYSPEPSIA
     Dosage: 40 MILLIGRAM
     Route: 048
     Dates: start: 201205
  9. ACETYLSALICYLIC ACID [Concomitant]
     Indication: ISCHAEMIC HEART DISEASE PROPHYLAXIS
     Dosage: 80 MILLIGRAM
     Route: 048
     Dates: start: 200005, end: 20101019
  10. ACETYLSALICYLIC ACID [Concomitant]
     Dosage: 80 MILLIGRAM
     Route: 048
     Dates: start: 20121029
  11. AMLODIPINE [Concomitant]
     Indication: HYPERTENSION
     Dosage: 2.5 MILLIGRAM
     Route: 048
     Dates: start: 200005, end: 20120123
  12. BISOPROLOL [Concomitant]
     Indication: HYPERTENSION
     Dosage: 10 MILLIGRAM
     Route: 048
     Dates: start: 200005, end: 20120123
  13. BISOPROLOL [Concomitant]
     Dosage: 5 MILLIGRAM
     Route: 048
     Dates: start: 20120124, end: 20120202
  14. BISOPROLOL [Concomitant]
     Dosage: 2.5 MILLIGRAM
     Route: 048
     Dates: start: 20120203, end: 20120306
  15. BISOPROLOL [Concomitant]
     Dosage: 2.5 MILLIGRAM
     Route: 048
     Dates: start: 20120906, end: 20120906
  16. ATORVASTATINE [Concomitant]
     Indication: DYSLIPIDAEMIA
     Dosage: 10 MILLIGRAM
     Route: 048
     Dates: start: 201007, end: 20120905
  17. ATORVASTATINE [Concomitant]
     Dosage: 10 MILLIGRAM
     Route: 048
     Dates: start: 20120907
  18. GLICLAZIDE [Concomitant]
     Indication: DIABETES MELLITUS
     Dosage: 160 MILLIGRAM
     Route: 048
     Dates: start: 1998
  19. GLICLAZIDE [Concomitant]
     Dosage: 160 MILLIGRAM
     Route: 048
     Dates: start: 20120927
  20. ENOXAPARIN [Concomitant]
     Indication: THROMBOSIS PROPHYLAXIS
     Dosage: 40 MILLIGRAM
     Route: 058
     Dates: start: 20101019, end: 20120511
  21. ENOXAPARIN [Concomitant]
     Indication: THROMBOSIS PROPHYLAXIS
     Dosage: 30 MILLIGRAM
     Route: 058
     Dates: start: 20120512
  22. PAMIDRONATE [Concomitant]
     Indication: BONE DENSITY DECREASED
     Dosage: 90 MILLIGRAM
     Route: 041
     Dates: start: 20101103, end: 20111216
  23. OXAZEPAM [Concomitant]
     Indication: INSOMNIA
     Dosage: 15 MILLIGRAM
     Route: 048
     Dates: start: 20101117, end: 20110110
  24. OXAZEPAM [Concomitant]
     Dosage: 30 MILLIGRAM
     Route: 048
     Dates: start: 20110111, end: 20120722
  25. TYLENOL SINUS [Concomitant]
     Indication: NASOPHARYNGITIS
     Dosage: 1 TABLET
     Route: 048
     Dates: start: 20101228, end: 20101230
  26. IRON SULFATE [Concomitant]
     Indication: ANAEMIA
     Dosage: 900 MILLIGRAM
     Route: 048
     Dates: start: 20110406, end: 20110707
  27. CELECOXIB [Concomitant]
     Indication: PAIN IN EXTREMITY
     Dosage: 200 MILLIGRAM
     Route: 048
     Dates: start: 20110504, end: 20110605
  28. LOPERAMIDE [Concomitant]
     Indication: DIARRHOEA
     Route: 048
     Dates: start: 20111001
  29. VITAMIN D [Concomitant]
     Indication: SUPPLEMENTATION THERAPY
     Dosage: 10000 IU (INTERNATIONAL UNIT)
     Route: 048
     Dates: start: 20120203
  30. VITAMIN D [Concomitant]
     Indication: OSTEOPOROSIS PROPHYLAXIS
     Dosage: 10000 IU (INTERNATIONAL UNIT)
     Route: 048
     Dates: start: 20120501
  31. CALCIUM OSCAL [Concomitant]
     Indication: OSTEOPOROSIS PROPHYLAXIS
     Dosage: 1000 MILLIGRAM
     Route: 048
     Dates: start: 20120501
  32. CICLESONIDE [Concomitant]
     Indication: ASTHMA
     Dosage: 200 MILLIGRAM
     Route: 048
     Dates: start: 201005
  33. SALBUTAMOL [Concomitant]
     Indication: ASTHMA
     Dosage: 1-2
     Route: 048
     Dates: start: 201005
  34. BROMAZEPAM [Concomitant]
     Indication: INSOMNIA
     Dosage: 3 MILLIGRAM
     Route: 048
     Dates: start: 20120723
  35. EPREX [Concomitant]
     Indication: HAEMOGLOBIN DECREASED
     Dosage: 20000 IU (INTERNATIONAL UNIT)
     Route: 058
     Dates: start: 20120316, end: 20120504
  36. EPREX [Concomitant]
     Dosage: 10000 IU (INTERNATIONAL UNIT)
     Route: 058
     Dates: start: 20120516, end: 20120701
  37. EPREX [Concomitant]
     Dosage: 10000 IU (INTERNATIONAL UNIT)
     Route: 058
     Dates: start: 20120801
  38. PREDNISONE [Concomitant]
     Indication: PNEUMONIA
     Dosage: 40 MILLIGRAM
     Route: 041
     Dates: start: 20120907, end: 20120916
  39. PREDNISONE [Concomitant]
     Indication: PNEUMOCYSTIS JIROVECII INFECTION
     Dosage: 20 MILLIGRAM
     Route: 048
     Dates: start: 20120916, end: 20121002
  40. AVELOX [Concomitant]
     Indication: PNEUMONIA
     Dosage: 800 MILLIGRAM
     Route: 041
     Dates: start: 20120907, end: 20120908
  41. AVELOX [Concomitant]
     Indication: PNEUMOCYSTIS JIROVECII INFECTION
  42. SEPTRA [Concomitant]
     Indication: PROPHYLAXIS
     Dosage: 16/80MG
     Route: 041
     Dates: start: 20120907, end: 20120912
  43. SEPTRA [Concomitant]
     Dosage: 1.5 MILLIGRAM
     Route: 048
     Dates: start: 20120912, end: 20120920
  44. SEPTRA [Concomitant]
     Dosage: 1 PILL
     Route: 048
     Dates: start: 20120922
  45. PEPCID [Concomitant]
     Indication: DYSPEPSIA
     Dosage: 20 MILLIGRAM
     Route: 041
     Dates: start: 20120907, end: 20120909
  46. FLUCONAZOLE [Concomitant]
     Indication: CANDIDA INFECTION
     Dosage: 400 MILLIGRAM
     Route: 041
     Dates: start: 20120910, end: 20120910
  47. LOPRESSOR [Concomitant]
     Indication: HYPERTENSION
     Dosage: 25 MILLIGRAM
     Route: 041
     Dates: start: 20120911, end: 20120913
  48. INSULIN [Concomitant]
     Indication: DIABETES MELLITUS
     Route: 058
     Dates: start: 20120911
  49. PANTOLOC [Concomitant]
     Indication: DYSPEPSIA
     Dosage: 40 MILLIGRAM
     Route: 048
     Dates: start: 20120911
  50. SOTALOL [Concomitant]
     Indication: ATRIAL FIBRILLATION
     Dosage: 800 MILLIGRAM
     Route: 048
     Dates: start: 20120913
  51. KAYEXALATE [Concomitant]
     Indication: HYPERKALAEMIA
     Dosage: 15 GRAM
     Route: 041
     Dates: start: 20120921, end: 20120921
  52. GLUCONORM [Concomitant]
     Indication: DIABETES MELLITUS
     Dosage: 8 MILLIGRAM
     Route: 048
     Dates: start: 20120926, end: 20120927
  53. METHYLPREDNISOLONE [Concomitant]
     Indication: CARDIAC FAILURE
     Dosage: 60 MILLIGRAM
     Route: 041
     Dates: start: 20121027, end: 20121027

REACTIONS (3)
  - Torsade de pointes [Recovered/Resolved]
  - Ventricular tachycardia [Recovered/Resolved]
  - Cardiac failure [Recovered/Resolved]
